FAERS Safety Report 5099993-1 (Version None)
Quarter: 2006Q3

REPORT INFORMATION
  Report Type: 
  Country: None (occurrence: None)
  Receive Date: 20060906
  Receipt Date: 20060906
  Transmission Date: 20061208
  Serious: Yes (Hospitalization)
  Sender: FDA-Public Use
  Company Number: None

PATIENT
  Age: 59 Year
  Sex: Male
  Weight: 77.1 kg

DRUGS (1)
  1. CLONAZEPAM [Suspect]

REACTIONS (24)
  - ACCIDENTAL OVERDOSE [None]
  - ASTHENIA [None]
  - BACK PAIN [None]
  - BLOOD ALCOHOL INCREASED [None]
  - CIRCULATORY COLLAPSE [None]
  - DEHYDRATION [None]
  - DEPRESSION [None]
  - DRUG ABUSER [None]
  - FEELING GUILTY [None]
  - HALLUCINATION, AUDITORY [None]
  - HOMELESS [None]
  - HYPOGLYCAEMIA [None]
  - HYPOTENSION [None]
  - IMPULSIVE BEHAVIOUR [None]
  - INCORRECT DOSE ADMINISTERED [None]
  - INSOMNIA [None]
  - IRRITABILITY [None]
  - MIGRAINE [None]
  - PSYCHIATRIC SYMPTOM [None]
  - RENAL FAILURE ACUTE [None]
  - SLEEP DISORDER [None]
  - SOCIAL PROBLEM [None]
  - SUICIDE ATTEMPT [None]
  - VERTIGO [None]
